FAERS Safety Report 7048169-7 (Version None)
Quarter: 2010Q4

REPORT INFORMATION
  Report Type: 
  Country: None (occurrence: None)
  Receive Date: 20101014
  Receipt Date: 20101014
  Transmission Date: 20110411
  Serious: Yes (Disabling)
  Sender: FDA-Public Use
  Company Number: None

PATIENT
  Sex: Female
  Weight: 56.8 kg

DRUGS (4)
  1. NUVIGIL [Suspect]
     Indication: NARCOLEPSY
     Dosage: 125MG ONCE DAILY IN AM PO; HALF 125MG ONCE DAILY IN AM PO
     Route: 048
     Dates: start: 20100924
  2. NUVIGIL [Suspect]
     Indication: SOMNOLENCE
     Dosage: 125MG ONCE DAILY IN AM PO; HALF 125MG ONCE DAILY IN AM PO
     Route: 048
     Dates: start: 20100924
  3. NUVIGIL [Suspect]
     Indication: NARCOLEPSY
     Dosage: 125MG ONCE DAILY IN AM PO; HALF 125MG ONCE DAILY IN AM PO
     Route: 048
     Dates: start: 20101005
  4. NUVIGIL [Suspect]
     Indication: SOMNOLENCE
     Dosage: 125MG ONCE DAILY IN AM PO; HALF 125MG ONCE DAILY IN AM PO
     Route: 048
     Dates: start: 20101005

REACTIONS (9)
  - ABNORMAL BEHAVIOUR [None]
  - ACTIVITIES OF DAILY LIVING IMPAIRED [None]
  - DEPRESSION [None]
  - FEELING ABNORMAL [None]
  - FEELINGS OF WORTHLESSNESS [None]
  - HYPERHIDROSIS [None]
  - MORBID THOUGHTS [None]
  - NAUSEA [None]
  - PANIC ATTACK [None]
